FAERS Safety Report 17533717 (Version 14)
Quarter: 2021Q2

REPORT INFORMATION
  Report Type: Spontaneous
  Country: US (occurrence: US)
  Receive Date: 20200312
  Receipt Date: 20210608
  Transmission Date: 20210716
  Serious: Yes (Hospitalization, Other)
  Sender: FDA-Public Use
  Company Number: US-PFIZER INC-2020107070

PATIENT
  Age: 72 Year
  Sex: Female

DRUGS (2)
  1. IBRANCE [Suspect]
     Active Substance: PALBOCICLIB
     Indication: BREAST CANCER FEMALE
     Dosage: 125 MG, CYCLIC (ONCE DAILY 21 DAYS)
     Dates: start: 201911
  2. LETROZOLE. [Concomitant]
     Active Substance: LETROZOLE
     Dosage: UNK
     Dates: start: 201911

REACTIONS (7)
  - Pelvic cyst [Recovering/Resolving]
  - Swelling [Unknown]
  - Neoplasm progression [Unknown]
  - Atrioventricular block [Unknown]
  - Abdominal distension [Unknown]
  - White blood cell count decreased [Unknown]
  - Visual impairment [Unknown]
